FAERS Safety Report 18545416 (Version 1)
Quarter: 2020Q4

REPORT INFORMATION
  Report Type: Spontaneous
  Country: US (occurrence: US)
  Receive Date: 20201123
  Receipt Date: 20201123
  Transmission Date: 20210114
  Serious: Yes (Hospitalization, Disabling, Other)
  Sender: FDA-Public Use
  Company Number: None

PATIENT
  Age: 73 Year
  Sex: Male
  Weight: 58.97 kg

DRUGS (14)
  1. TYLENOL [Concomitant]
     Active Substance: ACETAMINOPHEN
  2. XARELTO [Suspect]
     Active Substance: RIVAROXABAN
     Indication: ARTERIAL THROMBOSIS
     Route: 048
     Dates: start: 20191115, end: 20200804
  3. XARELTO [Suspect]
     Active Substance: RIVAROXABAN
     Indication: ISCHAEMIA
     Route: 048
     Dates: start: 20191115, end: 20200804
  4. XARELTO [Suspect]
     Active Substance: RIVAROXABAN
     Indication: PERIPHERAL ARTERIAL OCCLUSIVE DISEASE
     Route: 048
     Dates: start: 20191115, end: 20200804
  5. IMDUR [Concomitant]
     Active Substance: ISOSORBIDE MONONITRATE
  6. LOSARTAN. [Concomitant]
     Active Substance: LOSARTAN
  7. XARELTO [Concomitant]
     Active Substance: RIVAROXABAN
  8. COREG [Concomitant]
     Active Substance: CARVEDILOL
  9. KCL PRN [Concomitant]
  10. ZYRTEC [Concomitant]
     Active Substance: CETIRIZINE HYDROCHLORIDE
  11. PEPCID [Concomitant]
     Active Substance: FAMOTIDINE
  12. LIPITOR [Concomitant]
     Active Substance: ATORVASTATIN CALCIUM
  13. LASIX [Concomitant]
     Active Substance: FUROSEMIDE
  14. SYNTHROID [Concomitant]
     Active Substance: LEVOTHYROXINE SODIUM

REACTIONS (14)
  - Post procedural complication [None]
  - Pain [None]
  - Restlessness [None]
  - Eschar [None]
  - Skin haemorrhage [None]
  - Wound infection [None]
  - Blister [None]
  - Discomfort [None]
  - Procedural haemorrhage [None]
  - Post procedural haemorrhage [None]
  - Skin reaction [None]
  - Erythema [None]
  - Impaired healing [None]
  - Postoperative wound infection [None]

NARRATIVE: CASE EVENT DATE: 20200827
